FAERS Safety Report 14657863 (Version 1)
Quarter: 2018Q1

REPORT INFORMATION
  Report Type: Spontaneous
  Country: US (occurrence: US)
  Receive Date: 20180320
  Receipt Date: 20180320
  Transmission Date: 20180509
  Serious: No
  Sender: FDA-Public Use
  Company Number: US-TEVA-763303USA

PATIENT
  Sex: Female

DRUGS (3)
  1. SUCRALFATE. [Suspect]
     Active Substance: SUCRALFATE
     Indication: DUMPING SYNDROME
  2. SUCRALFATE. [Suspect]
     Active Substance: SUCRALFATE
     Indication: GASTRITIS
     Dates: start: 201704
  3. SUCRALFATE. [Suspect]
     Active Substance: SUCRALFATE
     Indication: GASTROOESOPHAGEAL REFLUX DISEASE

REACTIONS (9)
  - Drug ineffective [Unknown]
  - Product substitution issue [Unknown]
  - Oesophageal pain [Not Recovered/Not Resolved]
  - Gastrooesophageal reflux disease [Unknown]
  - Dyspepsia [Not Recovered/Not Resolved]
  - Malaise [Not Recovered/Not Resolved]
  - Hyperhidrosis [Unknown]
  - Abdominal pain upper [Unknown]
  - Fatigue [Unknown]
